FAERS Safety Report 25015923 (Version 2)
Quarter: 2025Q2

REPORT INFORMATION
  Report Type: Spontaneous
  Country: US (occurrence: US)
  Receive Date: 20250227
  Receipt Date: 20250521
  Transmission Date: 20250717
  Serious: No
  Sender: AMNEAL
  Company Number: US-AMNEAL PHARMACEUTICALS-2025-AMRX-00299

PATIENT
  Sex: Male

DRUGS (2)
  1. CREXONT [Suspect]
     Active Substance: CARBIDOPA\LEVODOPA
     Indication: Parkinson^s disease
     Dosage: (87.5/350 MG) 2 CAPSULES, 5 /DAY
     Route: 065
     Dates: start: 202410
  2. METOPROLOL [Concomitant]
     Active Substance: METOPROLOL
     Indication: Product used for unknown indication
     Dosage: (50 MG) 1 TABLETS, 1 /DAY
     Route: 065

REACTIONS (1)
  - Malaise [Unknown]
